FAERS Safety Report 22039659 (Version 1)
Quarter: 2023Q1

REPORT INFORMATION
  Report Type: Spontaneous
  Country: US (occurrence: None)
  Receive Date: 20230225
  Receipt Date: 20230225
  Transmission Date: 20230418
  Serious: Yes (Other)
  Sender: FDA-Public Use
  Company Number: None

PATIENT
  Age: 39 Year
  Sex: Female
  Weight: 51.75 kg

DRUGS (2)
  1. DEXTROAMPHET SACCHARAT, AMPHET ASPARTATE, DEXTROAMPHET SULFATE AND AMP [Suspect]
     Active Substance: AMPHETAMINE ASPARTATE\AMPHETAMINE SULFATE\DEXTROAMPHETAMINE SACCHARATE\DEXTROAMPHETAMINE SULFATE
     Indication: Attention deficit hyperactivity disorder
     Dosage: FREQUENCY : DAILY;?
     Route: 048
     Dates: start: 20230208, end: 20230225
  2. DEXTRO-AMPHETAMINE ER [Concomitant]

REACTIONS (6)
  - Gastrooesophageal reflux disease [None]
  - Stomatitis [None]
  - Urticaria [None]
  - Drug ineffective [None]
  - Job dissatisfaction [None]
  - Impaired driving ability [None]

NARRATIVE: CASE EVENT DATE: 20230225
